FAERS Safety Report 19958398 (Version 4)
Quarter: 2021Q4

REPORT INFORMATION
  Report Type: Spontaneous
  Country: JP (occurrence: JP)
  Receive Date: 20211015
  Receipt Date: 20211210
  Transmission Date: 20220303
  Serious: Yes (Hospitalization, Other)
  Sender: FDA-Public Use
  Company Number: JP-GLAXOSMITHKLINE-JP2021JPN210405

PATIENT
  Age: 67 Year
  Sex: Female
  Weight: 48.4 kg

DRUGS (5)
  1. LAMICTAL [Suspect]
     Active Substance: LAMOTRIGINE
     Indication: Bipolar disorder
     Dosage: 25 MG, QOD
     Route: 048
     Dates: start: 20160526, end: 20160607
  2. LAMICTAL [Suspect]
     Active Substance: LAMOTRIGINE
     Indication: Mental disorder
     Dosage: 25 MG, QD
     Route: 048
     Dates: start: 20160609, end: 20160622
  3. LAMICTAL [Suspect]
     Active Substance: LAMOTRIGINE
     Dosage: 50 MG, QD
     Route: 048
     Dates: start: 20160623, end: 202102
  4. LAMICTAL [Suspect]
     Active Substance: LAMOTRIGINE
     Dosage: 50 MG, QD
     Route: 048
     Dates: start: 20210311
  5. LITHIUM CARBONATE [Suspect]
     Active Substance: LITHIUM CARBONATE
     Indication: Bipolar disorder
     Dosage: UNK
     Dates: start: 2005

REACTIONS (11)
  - Mental disorder [Recovering/Resolving]
  - Depressive symptom [Recovering/Resolving]
  - Depression [Recovering/Resolving]
  - Fluid intake reduced [Recovering/Resolving]
  - Poverty of speech [Recovering/Resolving]
  - Hypernatraemia [Recovering/Resolving]
  - Polyuria [Recovering/Resolving]
  - Nephrogenic diabetes insipidus [Recovering/Resolving]
  - Renal impairment [Recovering/Resolving]
  - Therapy cessation [Unknown]
  - Product use issue [Unknown]

NARRATIVE: CASE EVENT DATE: 20160526
